FAERS Safety Report 17434301 (Version 2)
Quarter: 2020Q2

REPORT INFORMATION
  Report Type: Spontaneous
  Country: US (occurrence: US)
  Receive Date: 20200219
  Receipt Date: 20200413
  Transmission Date: 20200713
  Serious: No
  Sender: FDA-Public Use
  Company Number: US-PFIZER INC-2020071586

PATIENT
  Age: 63 Year
  Sex: Female

DRUGS (1)
  1. LYRICA [Suspect]
     Active Substance: PREGABALIN
     Dosage: UNK

REACTIONS (7)
  - Amnesia [Unknown]
  - Inflammation [Unknown]
  - Asthenia [Unknown]
  - Rash [Unknown]
  - Memory impairment [Unknown]
  - Malaise [Unknown]
  - Head discomfort [Unknown]
